FAERS Safety Report 8823008 (Version 3)
Quarter: 2012Q4

REPORT INFORMATION
  Report Type: 
  Country: DE (occurrence: DE)
  Receive Date: 20121003
  Receipt Date: 20121129
  Transmission Date: 20130627
  Serious: Yes (Hospitalization, Disabling, Other)
  Sender: FDA-Public Use
  Company Number: DE-JNJFOC-20121001394

PATIENT
  Age: 66 None
  Sex: Male
  Weight: 106 kg

DRUGS (5)
  1. XARELTO [Suspect]
     Indication: PRODUCT USED FOR UNKNOWN INDICATION
     Route: 048
     Dates: start: 201205, end: 201207
  2. MICARDIS PLUS [Concomitant]
  3. CYNT [Concomitant]
  4. CYNT [Concomitant]
  5. MICARDIS PLUS [Concomitant]

REACTIONS (5)
  - Retinal infarction [Unknown]
  - Retinal artery occlusion [Unknown]
  - Blindness [Unknown]
  - Carotid artery occlusion [Unknown]
  - Influenza like illness [Unknown]
